FAERS Safety Report 4296930-4 (Version None)
Quarter: 2004Q1

REPORT INFORMATION
  Report Type: 
  Country: None (occurrence: None)
  Receive Date: 20040213
  Receipt Date: 20040205
  Transmission Date: 20041129
  Serious: Yes (Other)
  Sender: FDA-Public Use
  Company Number: 2003-09-2391

PATIENT
  Age: 59 Year
  Sex: Male
  Weight: 47 kg

DRUGS (7)
  1. INTRON A [Suspect]
     Indication: HEPATITIS C
     Dosage: SEE IMAGE INTRAMUSCULAR
     Route: 030
     Dates: start: 20030616, end: 20030628
  2. INTRON A [Suspect]
     Indication: HEPATITIS C
     Dosage: SEE IMAGE INTRAMUSCULAR
     Route: 030
     Dates: start: 20030616, end: 20030827
  3. INTRON A [Suspect]
     Indication: HEPATITIS C
     Dosage: SEE IMAGE INTRAMUSCULAR
     Route: 030
     Dates: start: 20030630, end: 20030827
  4. REBETOL [Suspect]
     Indication: HEPATITIS C
     Dosage: 600 MG QD ORAL
     Route: 048
     Dates: start: 20030616, end: 20030829
  5. LANSOPRAZOLE [Suspect]
     Indication: GASTRIC ULCER
     Dosage: 30 MG QD ORAL
     Route: 048
     Dates: start: 20030514
  6. PROMAC (POLAPREZINC) [Suspect]
     Indication: GASTRIC ULCER
     Dosage: 1.0 GM QD ORAL
     Route: 048
     Dates: start: 20030514
  7. URSODEOXYCHOLIC ACID [Suspect]
     Indication: HEPATITIS C
     Dosage: 300 MG QD
     Dates: start: 20030514

REACTIONS (3)
  - MELANODERMIA [None]
  - ORTHOSTATIC HYPOTENSION [None]
  - PIGMENTATION DISORDER [None]
